FAERS Safety Report 9902843 (Version 1)
Quarter: 2014Q1

REPORT INFORMATION
  Report Type: Report from Study
  Country: US (occurrence: US)
  Receive Date: 20140217
  Receipt Date: 20140217
  Transmission Date: 20141002
  Serious: Yes (Other)
  Sender: FDA-Public Use
  Company Number: PHEH2014US002976

PATIENT
  Sex: Male
  Weight: 101.59 kg

DRUGS (15)
  1. ZOMETA [Suspect]
     Indication: PLASMA CELL MYELOMA
     Dosage: 4 MG, UNK
  2. CENTRUM [Concomitant]
  3. PROTONIX [Concomitant]
  4. AVAPRO [Concomitant]
  5. ATENOLOL [Concomitant]
  6. CEPHALEXIN [Concomitant]
  7. PAROXETINE [Concomitant]
  8. DIGOXIN [Concomitant]
  9. ALLOPURINOL [Concomitant]
  10. WARFARIN [Concomitant]
  11. POTASSIUM [Concomitant]
  12. VITAMIN D [Concomitant]
  13. IRON [Concomitant]
  14. MAGNESIUM [Concomitant]
  15. REVLIMID [Concomitant]

REACTIONS (4)
  - Hip fracture [Unknown]
  - Fall [Unknown]
  - Blood potassium decreased [Unknown]
  - Blood magnesium decreased [Unknown]
